FAERS Safety Report 8011481-9 (Version None)
Quarter: 2011Q4

REPORT INFORMATION
  Report Type: 
  Country: None (occurrence: None)
  Receive Date: 20111228
  Receipt Date: 20111220
  Transmission Date: 20120403
  Serious: No
  Sender: FDA-Public Use
  Company Number: US-PFIZER INC-2011227116

PATIENT
  Sex: Female

DRUGS (6)
  1. ZOLOFT [Concomitant]
     Dosage: 50 MG, QD (PRIOR TO 2001)
  2. LYRICA [Suspect]
     Indication: FIBROMYALGIA
     Dosage: 100 MG, 2X/DAY
     Route: 048
     Dates: start: 20110512, end: 20111004
  3. ZOLOFT [Concomitant]
     Dosage: 50 MG, HS
  4. MULTI-VITAMINS [Concomitant]
     Dosage: UNK
  5. VITAMIN B COMPLEX CAP [Concomitant]
     Dosage: UNK
  6. FISH OIL [Concomitant]
     Dosage: UNK
     Dates: start: 20100101

REACTIONS (1)
  - DRUG INEFFECTIVE [None]
